FAERS Safety Report 20446349 (Version 3)
Quarter: 2022Q2

REPORT INFORMATION
  Report Type: Report from Study
  Country: US (occurrence: US)
  Receive Date: 20220208
  Receipt Date: 20220421
  Transmission Date: 20220721
  Serious: No
  Sender: FDA-Public Use
  Company Number: US-LUNDBECK-DKLU3043990

PATIENT
  Age: 43 Year
  Sex: Female

DRUGS (4)
  1. VYEPTI [Suspect]
     Active Substance: EPTINEZUMAB-JJMR
     Indication: Migraine
     Route: 041
     Dates: start: 20211228
  2. VYEPTI [Suspect]
     Active Substance: EPTINEZUMAB-JJMR
     Indication: Migraine prophylaxis
     Route: 041
     Dates: start: 20220329
  3. UBRELVY [Concomitant]
     Active Substance: UBROGEPANT
     Indication: Headache
     Route: 065
  4. TYLENOL [Concomitant]
     Active Substance: ACETAMINOPHEN
     Indication: Headache
     Route: 065

REACTIONS (7)
  - Headache [Not Recovered/Not Resolved]
  - Sinusitis [Not Recovered/Not Resolved]
  - Fall [Recovered/Resolved]
  - Head injury [Unknown]
  - Dizziness [Recovered/Resolved]
  - Presyncope [Recovered/Resolved]
  - Concussion [Unknown]

NARRATIVE: CASE EVENT DATE: 20220301
